FAERS Safety Report 7290787-5 (Version None)
Quarter: 2011Q1

REPORT INFORMATION
  Report Type: 
  Country: None (occurrence: None)
  Receive Date: 20110201
  Receipt Date: 20110120
  Transmission Date: 20110831
  Serious: Yes (Death, Hospitalization)
  Sender: FDA-Public Use
  Company Number: 2009AC000188

PATIENT
  Age: 80 Year
  Sex: Female

DRUGS (40)
  1. SIMVASTATIN [Concomitant]
  2. GLUCOTROL [Concomitant]
  3. ALDACTAZIDE [Concomitant]
  4. ROCEPHIN [Concomitant]
  5. ASCORBIC ACID [Concomitant]
  6. LASIX [Concomitant]
  7. SPIRONOLACTONE [Concomitant]
  8. CARVEDILOL [Concomitant]
  9. ALDACTAZIDE [Concomitant]
  10. ZITHROMAX [Concomitant]
  11. DIGOXIN [Suspect]
     Indication: ATRIAL FIBRILLATION
     Dosage: 0.125 MG; QD; PO
     Route: 048
     Dates: start: 19940201
  12. COUMADIN [Concomitant]
  13. LASIX [Concomitant]
  14. VITAMIN K TAB [Concomitant]
  15. FLAGYL [Concomitant]
  16. ACETAMINOPHEN [Concomitant]
  17. GLUCOVANCE [Concomitant]
  18. NYSTATIN [Concomitant]
  19. REGLAN [Concomitant]
  20. ZOCOR [Concomitant]
  21. HYDROCHLOROTHIAZIDE [Concomitant]
  22. ENALAPRIL [Concomitant]
  23. EXELON [Concomitant]
  24. ZINC [Concomitant]
  25. DIGOXIN [Suspect]
     Indication: ATRIAL FIBRILLATION
     Dosage: 0.125 MG; QD;
     Dates: start: 20080214
  26. COREG [Concomitant]
  27. CHERATUSSIN [Concomitant]
  28. QUINAGLUTE [Concomitant]
  29. CALAN [Concomitant]
  30. COZAAR [Concomitant]
  31. DIGOXIN [Suspect]
     Indication: ATRIAL FIBRILLATION
     Dosage: 0.25 MG; QD; PO
     Route: 048
     Dates: start: 19920101
  32. ASIPRIN [Concomitant]
  33. LEVAQUIN [Concomitant]
  34. NITROGLYCERIN [Concomitant]
  35. CALAN [Concomitant]
  36. LOPRESSOR [Concomitant]
  37. METOPROLOL [Concomitant]
  38. METOCLOPRAM [Concomitant]
  39. PROTONIX [Concomitant]
  40. DOPAMINE [Concomitant]

REACTIONS (52)
  - ECONOMIC PROBLEM [None]
  - GANGRENE [None]
  - CONDITION AGGRAVATED [None]
  - FALL [None]
  - INTERNATIONAL NORMALISED RATIO INCREASED [None]
  - ISCHAEMIC HEPATITIS [None]
  - ACTIVITIES OF DAILY LIVING IMPAIRED [None]
  - SURGERY [None]
  - BEDRIDDEN [None]
  - CHEST PAIN [None]
  - FAILURE TO THRIVE [None]
  - BACK PAIN [None]
  - MASTECTOMY [None]
  - CARDIAC FAILURE CONGESTIVE [None]
  - MENTAL STATUS CHANGES [None]
  - SKIN ULCER [None]
  - PAIN IN EXTREMITY [None]
  - DEEP VEIN THROMBOSIS [None]
  - CARDIOMEGALY [None]
  - TOXICITY TO VARIOUS AGENTS [None]
  - WHITE BLOOD CELL COUNT INCREASED [None]
  - RETROPERITONEAL HAEMATOMA [None]
  - ARRHYTHMIA [None]
  - RENAL FAILURE [None]
  - UNEVALUABLE EVENT [None]
  - DIARRHOEA [None]
  - BRADYCARDIA [None]
  - ATRIAL FIBRILLATION [None]
  - ARTHRALGIA [None]
  - PLEURAL EFFUSION [None]
  - SINUS ARREST [None]
  - HYPONATRAEMIA [None]
  - HEAD INJURY [None]
  - RENAL IMPAIRMENT [None]
  - REFUSAL OF TREATMENT BY PATIENT [None]
  - CARDIO-RESPIRATORY ARREST [None]
  - MULTIPLE INJURIES [None]
  - RETROPERITONEAL HAEMORRHAGE [None]
  - TROPONIN INCREASED [None]
  - BLOOD CREATINE PHOSPHOKINASE MB INCREASED [None]
  - PNEUMONIA [None]
  - DECREASED APPETITE [None]
  - HYPOGLYCAEMIA [None]
  - WEIGHT DECREASED [None]
  - MITRAL VALVE INCOMPETENCE [None]
  - HYPOVOLAEMIA [None]
  - DIABETES MELLITUS [None]
  - CLOSTRIDIUM DIFFICILE COLITIS [None]
  - ASTHENIA [None]
  - COAGULOPATHY [None]
  - ABDOMINAL WALL HAEMATOMA [None]
  - URINARY TRACT INFECTION [None]
